FAERS Safety Report 20058714 (Version 1)
Quarter: 2021Q4

REPORT INFORMATION
  Report Type: Spontaneous
  Country: BR (occurrence: BR)
  Receive Date: 20211111
  Receipt Date: 20211111
  Transmission Date: 20220303
  Serious: Yes (Other)
  Sender: FDA-Public Use
  Company Number: None

PATIENT
  Age: 9 Year
  Sex: Male

DRUGS (8)
  1. SINGULAIR [Suspect]
     Active Substance: MONTELUKAST SODIUM
     Dosage: 5 MILLIGRAM, QD
  2. SERETIDE [Suspect]
     Active Substance: FLUTICASONE PROPIONATE\SALMETEROL XINAFOATE
     Indication: Asthma
     Dosage: SERETIDE 25/125 MCG ? 3 TIMES A DAY
     Dates: end: 20201104
  3. SYMBICORT [Suspect]
     Active Substance: BUDESONIDE\FORMOTEROL FUMARATE DIHYDRATE
     Indication: Asthma
     Dosage: 3 TIMES A DAY
     Dates: start: 20201105
  4. AZITHROMYCIN [Suspect]
     Active Substance: AZITHROMYCIN
     Dosage: 3 TIMES A DAY
     Dates: start: 201908
  5. SPIRIVA [Suspect]
     Active Substance: TIOTROPIUM BROMIDE MONOHYDRATE
     Dosage: UNK
     Dates: start: 2018, end: 201910
  6. ALBUTEROL [Suspect]
     Active Substance: ALBUTEROL
     Indication: Crying
     Dosage: UNK
  7. CEFTRIAXONE SODIUM [Suspect]
     Active Substance: CEFTRIAXONE SODIUM
     Dosage: UNK
     Route: 030
  8. NUCALA [Suspect]
     Active Substance: MEPOLIZUMAB
     Dosage: 100 MILLIGRAM
     Dates: start: 20201215

REACTIONS (20)
  - Apnoea [Unknown]
  - Asthmatic crisis [Unknown]
  - Crying [Recovering/Resolving]
  - Sleep disorder [Unknown]
  - Nasal septal operation [Unknown]
  - Polypectomy [Unknown]
  - Tonsillectomy [Unknown]
  - Dyspnoea [Unknown]
  - Oxygen saturation decreased [Unknown]
  - Cough [Unknown]
  - Dysphonia [Unknown]
  - Poor quality sleep [Unknown]
  - Sneezing [Unknown]
  - Intentional product misuse [Unknown]
  - Product administered to patient of inappropriate age [Unknown]
  - Incorrect product administration duration [Unknown]
  - Product dose omission issue [Unknown]
  - Quarantine [Unknown]
  - Productive cough [Recovered/Resolved]
  - Hypersensitivity [Recovered/Resolved]

NARRATIVE: CASE EVENT DATE: 20190301
